FAERS Safety Report 9875572 (Version 1)
Quarter: 2014Q1

REPORT INFORMATION
  Report Type: Spontaneous
  Country: US (occurrence: None)
  Receive Date: 20140205
  Receipt Date: 20140205
  Transmission Date: 20141002
  Serious: Yes (Other)
  Sender: FDA-Public Use
  Company Number: None

PATIENT
  Age: 16 Year
  Sex: Female
  Weight: 71.67 kg

DRUGS (1)
  1. DEPO-PROVERA, 150 MG [Suspect]
     Indication: CONTRACEPTION
     Route: 030
     Dates: start: 20130920, end: 20131220

REACTIONS (1)
  - Pregnancy test urine positive [None]
